FAERS Safety Report 23552131 (Version 1)
Quarter: 2024Q1

REPORT INFORMATION
  Report Type: Report from Study
  Country: US (occurrence: US)
  Receive Date: 20240222
  Receipt Date: 20240222
  Transmission Date: 20240410
  Serious: Yes (Other)
  Sender: FDA-Public Use
  Company Number: US-JNJFOC-20240259283

PATIENT
  Age: 84 Year
  Sex: Male

DRUGS (2)
  1. ERLEADA [Suspect]
     Active Substance: APALUTAMIDE
     Indication: Prostate cancer metastatic
     Route: 048
  2. ZYTIGA [Suspect]
     Active Substance: ABIRATERONE ACETATE
     Indication: Prostate cancer metastatic
     Route: 048

REACTIONS (4)
  - Haematochezia [Unknown]
  - Haematuria [Unknown]
  - Urinary hesitation [Unknown]
  - Bone pain [Unknown]
